FAERS Safety Report 18972377 (Version 2)
Quarter: 2021Q2

REPORT INFORMATION
  Report Type: Report from Study
  Country: CA (occurrence: CA)
  Receive Date: 20210305
  Receipt Date: 20210414
  Transmission Date: 20210717
  Serious: Yes (Hospitalization, Other)
  Sender: FDA-Public Use
  Company Number: CA-JNJFOC-20210244319

PATIENT
  Sex: Male

DRUGS (2)
  1. ENZALUTAMIDE [Suspect]
     Active Substance: ENZALUTAMIDE
     Indication: PROSTATE CANCER METASTATIC
     Route: 065
  2. ABIRATERONE ACETATE. [Suspect]
     Active Substance: ABIRATERONE ACETATE
     Indication: PROSTATE CANCER METASTATIC
     Route: 048

REACTIONS (18)
  - Haematuria [Unknown]
  - Hyperglycaemia [Unknown]
  - Myocardial ischaemia [Unknown]
  - Electrolyte imbalance [Unknown]
  - Toxicity to various agents [Unknown]
  - Seizure [Unknown]
  - Hypokalaemia [Unknown]
  - Constipation [Unknown]
  - Arrhythmia [Unknown]
  - Anaemia [Unknown]
  - Cardiac failure [Unknown]
  - Diabetes mellitus [Unknown]
  - Fluid overload [Unknown]
  - Arthralgia [Unknown]
  - Neutropenia [Unknown]
  - Hypertension [Unknown]
  - Urinary tract infection [Unknown]
  - Liver disorder [Unknown]
